FAERS Safety Report 6958016-7 (Version None)
Quarter: 2010Q3

REPORT INFORMATION
  Report Type: 
  Country: None (occurrence: None)
  Receive Date: 20100831
  Receipt Date: 20100819
  Transmission Date: 20110219
  Serious: Yes (Congenital Anomaly)
  Sender: FDA-Public Use
  Company Number: PK-BRISTOL-MYERS SQUIBB COMPANY-15257397

PATIENT

DRUGS (1)
  1. METFORMIN HCL [Suspect]
     Route: 064

REACTIONS (1)
  - POLYDACTYLY [None]
